FAERS Safety Report 16850009 (Version 1)
Quarter: 2019Q3

REPORT INFORMATION
  Report Type: Spontaneous
  Country: GB (occurrence: GB)
  Receive Date: 20190925
  Receipt Date: 20190925
  Transmission Date: 20191005
  Serious: Yes (Other)
  Sender: FDA-Public Use
  Company Number: GB-CMP PHARMA-2019CMP00026

PATIENT

DRUGS (1)
  1. TRIAMCINOLONE [Suspect]
     Active Substance: TRIAMCINOLONE
     Indication: CARPAL TUNNEL SYNDROME
     Dosage: 40 MG
     Route: 065

REACTIONS (2)
  - Injection site ischaemia [Not Recovered/Not Resolved]
  - Gangrene [Not Recovered/Not Resolved]
